FAERS Safety Report 24943606 (Version 1)
Quarter: 2025Q1

REPORT INFORMATION
  Report Type: Spontaneous
  Country: ZA (occurrence: ZA)
  Receive Date: 20250207
  Receipt Date: 20250207
  Transmission Date: 20250409
  Serious: Yes (Hospitalization, Other)
  Sender: EMD SERONO INC
  Company Number: ZA-Merck Healthcare KGaA-2025005678

PATIENT
  Age: 45 Year
  Sex: Female

DRUGS (1)
  1. REBIF [Suspect]
     Active Substance: INTERFERON BETA-1A
     Indication: Relapsing-remitting multiple sclerosis

REACTIONS (6)
  - Muscular weakness [Unknown]
  - Coordination abnormal [Unknown]
  - Balance disorder [Unknown]
  - Visual evoked potentials abnormal [Unknown]
  - Somatosensory evoked potentials abnormal [Unknown]
  - CSF oligoclonal band present [Unknown]

NARRATIVE: CASE EVENT DATE: 20180901
